FAERS Safety Report 15739285 (Version 1)
Quarter: 2018Q4

REPORT INFORMATION
  Report Type: Spontaneous
  Country: US (occurrence: US)
  Receive Date: 20181219
  Receipt Date: 20181219
  Transmission Date: 20190205
  Serious: No
  Sender: FDA-Public Use
  Company Number: US-ALLERGAN-1838837US

PATIENT
  Sex: Male

DRUGS (1)
  1. LEXAPRO [Suspect]
     Active Substance: ESCITALOPRAM OXALATE
     Indication: ANXIETY
     Dosage: 20 MG, QD
     Route: 048
     Dates: start: 2004, end: 201807

REACTIONS (6)
  - Intentional dose omission [Unknown]
  - Seizure [Not Recovered/Not Resolved]
  - Serum serotonin increased [Not Recovered/Not Resolved]
  - Abdominal discomfort [Not Recovered/Not Resolved]
  - Lethargy [Not Recovered/Not Resolved]
  - Feeling jittery [Not Recovered/Not Resolved]
